FAERS Safety Report 7003924-4 (Version None)
Quarter: 2010Q3

REPORT INFORMATION
  Report Type: 
  Country: None (occurrence: None)
  Receive Date: 20100917
  Receipt Date: 20100819
  Transmission Date: 20110219
  Serious: Yes (Hospitalization, Other)
  Sender: FDA-Public Use
  Company Number: AUR-APL-2010-02122

PATIENT
  Age: 77 Year
  Sex: Male

DRUGS (11)
  1. LISINOPRIL [Suspect]
     Dosage: 10MG, DAILY
  2. METFORMIN [Suspect]
     Dosage: 500 MG, BID
  3. METOPROLOL TARTRATE [Suspect]
     Dosage: 100MG, DAILY
  4. ZOLPIDEM [Suspect]
  5. KLOR-CON [Suspect]
     Dosage: 10MEQ, BID
  6. FUROSEMIDE [Suspect]
     Dosage: 40MG, DAILY
  7. ADVAIR DISKUS 100/50 [Suspect]
     Dosage: 250/50MCG, 1 PUFF BID/PRN, INHALER
     Route: 055
  8. WARFARIN SODIUM [Suspect]
     Dosage: 4MG, DAILY; 5MG, DAILY
  9. VENTOLIN [Suspect]
     Dosage: 1PUFF PRN, INHALER
     Route: 055
  10. TIKOSYN [Suspect]
     Dosage: 250UG, BID
  11. INSPRA [Suspect]
     Dosage: 25MG, DAILY

REACTIONS (2)
  - ARTIFICIAL URINARY SPHINCTER IMPLANT [None]
  - CEREBROVASCULAR ACCIDENT [None]
